FAERS Safety Report 9775226 (Version 1)
Quarter: 2013Q4

REPORT INFORMATION
  Report Type: Spontaneous
  Country: US (occurrence: US)
  Receive Date: 20131220
  Receipt Date: 20131220
  Transmission Date: 20140711
  Serious: No
  Sender: FDA-Public Use
  Company Number: US-PFIZER INC-2013361521

PATIENT
  Age: 59 Year
  Sex: 0

DRUGS (11)
  1. LIPITOR [Suspect]
     Dosage: UNK
  2. PROTONIX [Suspect]
     Dosage: UNK
  3. GLUCOTROL [Suspect]
     Dosage: UNK
  4. MORPHINE SULFATE [Suspect]
     Dosage: UNK
  5. LANTUS [Suspect]
     Dosage: UNK
  6. NOVOLOG [Suspect]
     Dosage: UNK
  7. TRICOR [Suspect]
  8. PACERONE [Suspect]
     Dosage: UNK
  9. BUTRANS [Suspect]
     Dosage: UNK
  10. CODEINE SULFATE [Suspect]
     Dosage: UNK
  11. JANUVIA [Suspect]

REACTIONS (1)
  - Drug hypersensitivity [Unknown]
